FAERS Safety Report 9123692 (Version 1)
Quarter: 2013Q1

REPORT INFORMATION
  Report Type: Spontaneous
  Country: US (occurrence: US)
  Receive Date: 20130115
  Receipt Date: 20130115
  Transmission Date: 20140127
  Serious: Yes (Other)
  Sender: FDA-Public Use
  Company Number: PHEH2013US001241

PATIENT
  Sex: Female

DRUGS (6)
  1. DIOVAN HCT [Suspect]
     Dosage: UNK
     Dates: start: 1998
  2. LEVOTHYROXINE [Concomitant]
  3. CYMBALTA [Concomitant]
  4. MONTELUKAST SODIUM [Concomitant]
  5. METOPROLOL [Concomitant]
  6. CALCIUM [Concomitant]

REACTIONS (6)
  - Non-Hodgkin^s lymphoma [Unknown]
  - Pain [Unknown]
  - Urethral obstruction [Unknown]
  - Dysuria [Unknown]
  - Renal disorder [Unknown]
  - Abdominal discomfort [Unknown]
